FAERS Safety Report 14070072 (Version 1)
Quarter: 2017Q4

REPORT INFORMATION
  Report Type: Spontaneous
  Country: US (occurrence: None)
  Receive Date: 20171010
  Receipt Date: 20171010
  Transmission Date: 20180321
  Serious: No
  Sender: FDA-Public Use
  Company Number: None

PATIENT

DRUGS (1)
  1. ALLOPURINOL 100MG [Suspect]
     Active Substance: ALLOPURINOL

REACTIONS (2)
  - Product commingling [None]
  - Intercepted drug dispensing error [None]
